FAERS Safety Report 10747990 (Version 2)
Quarter: 2015Q1

REPORT INFORMATION
  Report Type: Spontaneous
  Country: FR (occurrence: FR)
  Receive Date: 20150129
  Receipt Date: 20150312
  Transmission Date: 20150721
  Serious: Yes (Hospitalization)
  Sender: FDA-Public Use
  Company Number: FR-ASTRAZENECA-2015SE07023

PATIENT
  Age: 58 Year
  Sex: Male

DRUGS (15)
  1. DEPAKOTE [Suspect]
     Active Substance: DIVALPROEX SODIUM
     Route: 048
  2. ONBREZ BREEEZHALER [Suspect]
     Active Substance: INDACATEROL
     Route: 065
  3. LARGACTIL [Suspect]
     Active Substance: CHLORPROMAZINE
     Dosage: 100 DROPS 3 TIMES A DAY IF NEEDED
     Route: 048
  4. ZOPICLONE [Concomitant]
     Active Substance: ZOPICLONE
  5. VENLAFAXINE [Suspect]
     Active Substance: VENLAFAXINE HYDROCHLORIDE
     Dosage: 75 MG SR AT MIDDAY
     Route: 048
  6. KARDEGIC [Suspect]
     Active Substance: ASPIRIN LYSINE
     Route: 048
  7. SULFARLEM [Suspect]
     Active Substance: ANETHOLTRITHION
     Route: 048
  8. LEVETIRACETAM. [Suspect]
     Active Substance: LEVETIRACETAM
     Route: 048
  9. INEXIUM [Suspect]
     Active Substance: ESOMEPRAZOLE
     Route: 048
  10. LEPTICUR [Suspect]
     Active Substance: TROPATEPINE HYDROCHLORIDE
     Dosage: 10 MG AT MORNING AND MIDDAY
     Route: 048
  11. THERALENE [Suspect]
     Active Substance: TRIMEPRAZINE
     Dosage: 6 DF AT BEDTIME IF NEEDED IF INSOMNIA
     Route: 048
  12. PARACETAMOL [Suspect]
     Active Substance: ACETAMINOPHEN
     Route: 048
  13. HALDOL [Suspect]
     Active Substance: HALOPERIDOL
     Dosage: 100 DROPS AT MORNING, 200 DROPS AT NIGHT
     Route: 065
  14. HEPTAMINOL CHLORHYDRATE RICHARD [Suspect]
     Active Substance: HEPTAMINOL HYDROCHLORIDE
     Route: 048
  15. ATARAX [Concomitant]
     Active Substance: HYDROXYZINE\HYDROXYZINE HYDROCHLORIDE

REACTIONS (1)
  - Hypoglycaemia [Recovered/Resolved]

NARRATIVE: CASE EVENT DATE: 20140722
